FAERS Safety Report 7917912-4 (Version None)
Quarter: 2011Q4

REPORT INFORMATION
  Report Type: 
  Country: None (occurrence: None)
  Receive Date: 20111116
  Receipt Date: 20111111
  Transmission Date: 20120403
  Serious: Yes (Death)
  Sender: FDA-Public Use
  Company Number: PHHY2011MX100004

PATIENT
  Age: 75 Year
  Sex: Female

DRUGS (4)
  1. ADALAT CC [Concomitant]
     Dosage: UNK UKN, UNK
     Dates: start: 20001101
  2. NEURONTIN [Concomitant]
     Dosage: UNK UKN, UNK
     Dates: start: 20001101
  3. EXFORGE [Suspect]
     Indication: DIABETES MELLITUS
     Dosage: 1 DF (160/10 MG), DAILY
  4. THIOCTIC ACID [Concomitant]
     Dosage: UNK UKN, UNK
     Dates: start: 20081101

REACTIONS (2)
  - ORGAN FAILURE [None]
  - CEREBRAL INFARCTION [None]
